FAERS Safety Report 24991979 (Version 2)
Quarter: 2025Q3

REPORT INFORMATION
  Report Type: Spontaneous
  Country: EU (occurrence: EU)
  Receive Date: 20250220
  Receipt Date: 20250905
  Transmission Date: 20251020
  Serious: Yes (Other)
  Sender: MYLAN
  Company Number: EU-KENVUE-20250111743

PATIENT
  Age: 82 Year
  Sex: Female

DRUGS (13)
  1. CLOZAPINE [Suspect]
     Active Substance: CLOZAPINE
     Indication: Product used for unknown indication
  2. AMOXICILLIN [Suspect]
     Active Substance: AMOXICILLIN
     Indication: Product used for unknown indication
     Dosage: 1 GRAM, TID (1 GRAM,3 TIMES DAILY, THRICE A DAY)
     Dates: start: 20220823, end: 20220830
  3. CITALOPRAM [Suspect]
     Active Substance: CITALOPRAM
     Indication: Product used for unknown indication
  4. ECONAZOLE [Suspect]
     Active Substance: ECONAZOLE
     Indication: Product used for unknown indication
  5. ELIQUIS [Suspect]
     Active Substance: APIXABAN
     Indication: Product used for unknown indication
     Dosage: 10 MILLIGRAM, QD (5 MILLIGRAM MORNING AND EVENING)
  6. SINEMET [Suspect]
     Active Substance: CARBIDOPA\LEVODOPA
     Indication: Product used for unknown indication
  7. KARDEGIC [Suspect]
     Active Substance: ASPIRIN DL-LYSINE
     Indication: Product used for unknown indication
  8. FUROSEMIDE [Suspect]
     Active Substance: FUROSEMIDE
     Indication: Product used for unknown indication
     Dosage: 120 MILLIGRAM EVERY 1 DAYS
  9. FUROSEMIDE [Suspect]
     Active Substance: FUROSEMIDE
     Dosage: 40 MILLIGRAM EVERY 1 DAYS
  10. HYDROXYUREA [Suspect]
     Active Substance: HYDROXYUREA
     Indication: Product used for unknown indication
     Dosage: 2 DOSAGE FORM, QD2 DOSAGE FORM, QD (2 DOSAGE FORM TWO TABLETS PER DAY, EVERY 1 DAYS)
     Dates: start: 200507
  11. HYDROXYUREA [Suspect]
     Active Substance: HYDROXYUREA
     Dosage: 2 DOSAGE FORM, QD (2 DOSAGE FORM TWO TABLETS PER DAY, EVERY 1 DAYS)
     Dates: start: 20220801
  12. ANAGRELIDE HYDROCHLORIDE [Suspect]
     Active Substance: ANAGRELIDE HYDROCHLORIDE
     Indication: Product used for unknown indication
  13. PEGASYS [Concomitant]
     Active Substance: PEGINTERFERON ALFA-2A
     Indication: Product used for unknown indication
     Dosage: 9 MICROGRAM, QW

REACTIONS (8)
  - Renal failure [Unknown]
  - Pyelonephritis [Unknown]
  - Parkinson^s disease [Unknown]
  - Dementia [Unknown]
  - Skin ulcer [Unknown]
  - Angiodermatitis [Unknown]
  - COVID-19 [Unknown]
  - Hypertension [Unknown]

NARRATIVE: CASE EVENT DATE: 20220701
